FAERS Safety Report 13945225 (Version 1)
Quarter: 2017Q3

REPORT INFORMATION
  Report Type: Spontaneous
  Country: US (occurrence: US)
  Receive Date: 20170907
  Receipt Date: 20170907
  Transmission Date: 20171128
  Serious: No
  Sender: FDA-Public Use
  Company Number: US-TEVA-778655ACC

PATIENT
  Age: 65 Year
  Sex: Female
  Weight: 57.14 kg

DRUGS (5)
  1. MUCUS D [Suspect]
     Active Substance: GUAIFENESIN\PSEUDOEPHEDRINE HYDROCHLORIDE
     Indication: INCREASED UPPER AIRWAY SECRETION
     Dosage: 4 DOSAGE FORMS DAILY; PSEUDOEPHEDRINE HYDROCHLORIDE/GUAIFENESIN : 60/600 MG
     Route: 048
     Dates: start: 20170321, end: 20170327
  2. PROBIOTIC [Concomitant]
     Active Substance: PROBIOTICS NOS
     Dates: start: 20170321
  3. ATORVASTATIN [Concomitant]
     Active Substance: ATORVASTATIN
  4. METHYLPREDNISOLONE. [Concomitant]
     Active Substance: METHYLPREDNISOLONE
     Dates: start: 20170324
  5. PENICILLIN [Concomitant]
     Active Substance: PENICILLIN
     Dates: start: 20170321

REACTIONS (1)
  - Dysgeusia [Not Recovered/Not Resolved]

NARRATIVE: CASE EVENT DATE: 201703
